FAERS Safety Report 5779792-5 (Version None)
Quarter: 2008Q2

REPORT INFORMATION
  Report Type: 
  Country: None (occurrence: None)
  Receive Date: 20080619
  Receipt Date: 20080609
  Transmission Date: 20081010
  Serious: Yes (Other)
  Sender: FDA-Public Use
  Company Number: US-TYCO HEALTHCARE/MALLINCKRODT-T200801018

PATIENT

DRUGS (3)
  1. OPTIMARK [Suspect]
     Dosage: UNK, SINGLE
     Dates: start: 20011118, end: 20011118
  2. OMNISCAN [Suspect]
     Dosage: UNK, SINGLE
     Dates: start: 19980611, end: 19980611
  3. OMNISCAN [Suspect]
     Dosage: UNK, SINGLE
     Dates: start: 20080627, end: 20080627

REACTIONS (1)
  - NEPHROGENIC SYSTEMIC FIBROSIS [None]
